FAERS Safety Report 21875374 (Version 1)
Quarter: 2023Q1

REPORT INFORMATION
  Report Type: Other
  Country: SE (occurrence: None)
  Receive Date: 20230118
  Receipt Date: 20230118
  Transmission Date: 20230418
  Serious: Yes (Hospitalization, Other)
  Sender: FDA-Public Use
  Company Number: SE-Saptalis Pharmaceuticals,LLC-000331

PATIENT
  Age: 56 Year
  Sex: Female

DRUGS (2)
  1. ACETIC ACID [Suspect]
     Active Substance: ACETIC ACID
     Indication: Product used for unknown indication
     Dosage: 500 ML OF 24% ACETIC ACID
  2. METOPROLOL [Concomitant]
     Active Substance: METOPROLOL
     Indication: Hypertension

REACTIONS (9)
  - Toxicity to various agents [Recovered/Resolved]
  - Hypotension [Recovered/Resolved]
  - Respiratory distress [Recovered/Resolved]
  - Condition aggravated [Recovered/Resolved]
  - Haemolysis [Recovered/Resolved]
  - Metabolic acidosis [Recovered/Resolved]
  - Distributive shock [Recovered/Resolved]
  - Gastrointestinal inflammation [Recovered/Resolved]
  - Renal failure [Recovered/Resolved]
